FAERS Safety Report 9114859 (Version 1)
Quarter: 2013Q1

REPORT INFORMATION
  Report Type: Report from Study
  Country: FR (occurrence: FR)
  Receive Date: 20130208
  Receipt Date: 20130208
  Transmission Date: 20140127
  Serious: Yes (Hospitalization)
  Sender: FDA-Public Use
  Company Number: FR-ABBOTT-13P-056-1043856-00

PATIENT
  Age: 59 Year
  Sex: Male

DRUGS (3)
  1. KALETRA [Suspect]
     Indication: HIV INFECTION
     Dosage: 200/50MG
     Route: 048
     Dates: start: 20080930
  2. TRUVADA [Concomitant]
     Indication: HIV INFECTION
     Dates: start: 20080930
  3. ORACILLINE [Concomitant]
     Indication: PRODUCT USED FOR UNKNOWN INDICATION
     Dates: start: 20040427

REACTIONS (1)
  - Sciatica [Unknown]
